FAERS Safety Report 4538188-4 (Version None)
Quarter: 2004Q4

REPORT INFORMATION
  Report Type: 
  Country: None (occurrence: None)
  Receive Date: 20041221
  Receipt Date: 20041209
  Transmission Date: 20050328
  Serious: Yes (Hospitalization)
  Sender: FDA-Public Use
  Company Number: GBWYE277713DEC04

PATIENT
  Age: 64 Year
  Sex: Male

DRUGS (8)
  1. LEDERMYCIN  (DEMECLOCYCLINE, CAPSULE) [Suspect]
     Indication: HYPONATRAEMIA
     Dosage: 300 MG 2 X PER 1 DAY
     Route: 048
  2. SERTRALINE HCL [Concomitant]
  3. LISINOPRIL [Concomitant]
  4. ISOSORBIDE MONONITRATE [Concomitant]
  5. ACETAMINOPHEN [Concomitant]
  6. LANSOPRAZOLE [Concomitant]
  7. DIGOXIN [Concomitant]
  8. NICORANDIL (NICORANDIL) [Concomitant]

REACTIONS (1)
  - GASTROINTESTINAL HAEMORRHAGE [None]
